FAERS Safety Report 12397959 (Version 1)
Quarter: 2016Q2

REPORT INFORMATION
  Report Type: Spontaneous
  Country: CZ (occurrence: CZ)
  Receive Date: 20160524
  Receipt Date: 20160524
  Transmission Date: 20160815
  Serious: Yes (Other)
  Sender: FDA-Public Use
  Company Number: CZ-ACTAVIS-2016-07623

PATIENT
  Age: 53 Year
  Sex: Male

DRUGS (2)
  1. OLANZAPINE (UNKNOWN) [Suspect]
     Active Substance: OLANZAPINE
     Indication: DELUSIONAL DISORDER, UNSPECIFIED TYPE
     Dosage: 5 MG, UNKNOWN
     Route: 065
  2. ALPRAZOLAM (UNKNOWN) [Suspect]
     Active Substance: ALPRAZOLAM
     Indication: DELUSION
     Dosage: 1 MG, UNKNOWN
     Route: 065

REACTIONS (3)
  - Pulmonary embolism [Unknown]
  - Sedation [Unknown]
  - Deep vein thrombosis [Unknown]
